FAERS Safety Report 9240936 (Version 1)
Quarter: 2013Q2

REPORT INFORMATION
  Report Type: Spontaneous
  Country: US (occurrence: US)
  Receive Date: 20130418
  Receipt Date: 20130418
  Transmission Date: 20140414
  Serious: No
  Sender: FDA-Public Use
  Company Number: US-SANOFI-AVENTIS-2013SA005639

PATIENT
  Age: 45 Year
  Sex: Female
  Weight: 60.78 kg

DRUGS (2)
  1. LOVENOX [Suspect]
     Indication: CAVERNOUS SINUS THROMBOSIS
     Route: 065
     Dates: start: 201111
  2. LOVENOX [Suspect]
     Indication: CAVERNOUS SINUS THROMBOSIS
     Route: 065
     Dates: start: 201111

REACTIONS (4)
  - Injection site necrosis [Not Recovered/Not Resolved]
  - Injection site nodule [Not Recovered/Not Resolved]
  - Pain [Not Recovered/Not Resolved]
  - Weight decreased [Not Recovered/Not Resolved]
